FAERS Safety Report 23176107 (Version 2)
Quarter: 2023Q4

REPORT INFORMATION
  Report Type: Report from Study
  Country: CA (occurrence: CA)
  Receive Date: 20231113
  Receipt Date: 20231229
  Transmission Date: 20240110
  Serious: Yes (Other)
  Sender: FDA-Public Use
  Company Number: CA-TAKEDA-2023TUS109634

PATIENT
  Sex: Female

DRUGS (2)
  1. VEDOLIZUMAB [Suspect]
     Active Substance: VEDOLIZUMAB
     Indication: Crohn^s disease
     Dosage: 300 MILLIGRAM
     Route: 042
     Dates: start: 20171030
  2. LINACLOTIDE [Concomitant]
     Active Substance: LINACLOTIDE
     Dosage: UNK
     Route: 048
     Dates: start: 20220303

REACTIONS (1)
  - Crohn^s disease [Not Recovered/Not Resolved]
